FAERS Safety Report 8819729 (Version 1)
Quarter: 2012Q4

REPORT INFORMATION
  Report Type: 
  Country: US (occurrence: US)
  Receive Date: 20121001
  Receipt Date: 20121001
  Transmission Date: 20130627
  Serious: Yes (Death)
  Sender: FDA-Public Use
  Company Number: US-ROCHE-1129859

PATIENT
  Sex: Female

DRUGS (9)
  1. HERCEPTIN [Suspect]
     Indication: LUNG NEOPLASM MALIGNANT
     Dosage: 244 mg in 250 ml of normal saline
     Route: 042
     Dates: start: 19990204
  2. HERCEPTIN [Suspect]
     Dosage: 122 mg in 250 ml of normal saline
     Route: 042
     Dates: start: 19990211
  3. HERCEPTIN [Suspect]
     Dosage: 122 mg in 250 ml of normal lesion
     Route: 042
     Dates: start: 19990218
  4. HERCEPTIN [Suspect]
     Dosage: 122 mg in 250 cc of normal saline
     Route: 042
     Dates: start: 19990225
  5. TAXOL [Concomitant]
  6. TAXOTERE [Concomitant]
     Dosage: 56 mg in 250 ml of D5W
     Route: 065
     Dates: start: 19990204
  7. TAXOTERE [Concomitant]
     Dosage: 56 mg in 250 ml of D5W
     Route: 065
     Dates: start: 19990211
  8. TAXOTERE [Concomitant]
     Dosage: 56 mg in 250 ml of D5W
     Route: 065
     Dates: start: 19990218
  9. TAXOTERE [Concomitant]
     Dosage: 56 mg in 250 ml of D5W
     Route: 065
     Dates: start: 19990225

REACTIONS (12)
  - Death [Fatal]
  - Fatigue [Not Recovered/Not Resolved]
  - Asthenia [Not Recovered/Not Resolved]
  - Nausea [Recovered/Resolved]
  - Decreased appetite [Recovered/Resolved]
  - Rash [Recovered/Resolved]
  - Pyrexia [Recovered/Resolved]
  - Cough [Not Recovered/Not Resolved]
  - Dyspnoea [Unknown]
  - Crying [Recovered/Resolved]
  - Pain [Recovered/Resolved]
  - Chills [Recovered/Resolved]
